FAERS Safety Report 4311787-0 (Version None)
Quarter: 2004Q1

REPORT INFORMATION
  Report Type: 
  Country: None (occurrence: None)
  Receive Date: 20040302
  Receipt Date: 20031202
  Transmission Date: 20041129
  Serious: No
  Sender: FDA-Public Use
  Company Number: 200329488BWH

PATIENT
  Age: 63 Year
  Sex: Male

DRUGS (9)
  1. LEVITRA [Suspect]
     Indication: ERECTILE DYSFUNCTION
     Dosage: 10 MG, PRN, ORAL; 20 MG, TOTAL DAILY, ORAL
     Route: 048
     Dates: start: 20031128
  2. LEVITRA [Suspect]
     Indication: ERECTILE DYSFUNCTION
     Dosage: 10 MG, PRN, ORAL; 20 MG, TOTAL DAILY, ORAL
     Route: 048
     Dates: start: 20031129
  3. LIPITOR [Concomitant]
  4. TRICOR [Concomitant]
  5. COZAAR [Concomitant]
  6. ACTOS [Concomitant]
  7. CIMETIDINE HCL [Concomitant]
  8. ALLOPURINOL [Concomitant]
  9. SYNTHROID [Concomitant]

REACTIONS (3)
  - DRUG INEFFECTIVE [None]
  - ERECTILE DYSFUNCTION [None]
  - HEART RATE INCREASED [None]
